FAERS Safety Report 16631518 (Version 2)
Quarter: 2019Q3

REPORT INFORMATION
  Report Type: Spontaneous
  Country: US (occurrence: US)
  Receive Date: 20190725
  Receipt Date: 20190731
  Transmission Date: 20191004
  Serious: Yes (Death, Hospitalization, Other)
  Sender: FDA-Public Use
  Company Number: US-MALLINCKRODT-T201904895

PATIENT
  Sex: Male
  Weight: 9 kg

DRUGS (2)
  1. H.P. ACTHAR [Suspect]
     Active Substance: CORTICOTROPIN
     Dosage: 0.4 ML EVERY 12 HOURS FOR 21 DAYS
     Route: 030
     Dates: start: 2019, end: 2019
  2. H.P. ACTHAR [Suspect]
     Active Substance: CORTICOTROPIN
     Indication: INFANTILE SPASMS
     Dosage: 0.4 ML (32 UNITS) TWICE DAILY ON DAY 1 TO 14, 0.16 ML (12.8 UNITS) ONCE DAILY ON DAY 15-17, 0.08 ML
     Route: 030
     Dates: start: 20190611, end: 2019

REACTIONS (3)
  - Dyspnoea [Unknown]
  - General physical health deterioration [Unknown]
  - Death [Fatal]

NARRATIVE: CASE EVENT DATE: 2019
